FAERS Safety Report 6993431-7 (Version None)
Quarter: 2010Q3

REPORT INFORMATION
  Report Type: 
  Country: None (occurrence: None)
  Receive Date: 20100917
  Receipt Date: 20100423
  Transmission Date: 20110219
  Serious: No
  Sender: FDA-Public Use
  Company Number: US-ASTRAZENECA-2010SE18660

PATIENT
  Age: 47 Year
  Sex: Female
  Weight: 73.9 kg

DRUGS (8)
  1. SEROQUEL [Suspect]
     Indication: BIPOLAR DISORDER
     Route: 048
     Dates: start: 20080101, end: 20090101
  2. SEROQUEL [Suspect]
     Route: 048
     Dates: start: 20090101, end: 20100101
  3. SEROQUEL [Suspect]
     Route: 048
     Dates: start: 20100401, end: 20100401
  4. AMBIEN [Concomitant]
     Indication: SLEEP DISORDER
     Route: 065
  5. CELEXA [Concomitant]
     Indication: DEPRESSION
     Route: 065
  6. TRAMADOL [Concomitant]
     Indication: BACK PAIN
     Dosage: PRN
     Route: 065
  7. ATENOLOL [Concomitant]
     Route: 065
  8. NEURONTIN [Concomitant]
     Route: 065

REACTIONS (7)
  - BLOOD GLUCOSE INCREASED [None]
  - DIABETES MELLITUS [None]
  - DRUG DOSE OMISSION [None]
  - HALLUCINATION [None]
  - HYPERTENSION [None]
  - INCREASED APPETITE [None]
  - WEIGHT INCREASED [None]
